FAERS Safety Report 8014342-4 (Version None)
Quarter: 2011Q4

REPORT INFORMATION
  Report Type: 
  Country: None (occurrence: None)
  Receive Date: 20111229
  Receipt Date: 20111222
  Transmission Date: 20120403
  Serious: Yes (Life-Threatening, Hospitalization, Disabling, Other)
  Sender: FDA-Public Use
  Company Number: VN-BAYER-2011-121823

PATIENT
  Age: 65 Year
  Sex: Female

DRUGS (3)
  1. ULTRAVIST 150 [Suspect]
     Indication: DIARRHOEA
  2. ULTRAVIST 150 [Suspect]
     Indication: COMPUTERISED TOMOGRAM ABDOMEN
     Dosage: 50 ML, ONCE
     Route: 042
     Dates: start: 20111219, end: 20111219
  3. ULTRAVIST 150 [Suspect]
     Indication: ABDOMINAL PAIN

REACTIONS (7)
  - PALLOR [None]
  - ACCELERATED HYPERTENSION [None]
  - COMA [None]
  - WHEEZING [None]
  - SUBARACHNOID HAEMORRHAGE [None]
  - LOSS OF CONSCIOUSNESS [None]
  - QUADRIPLEGIA [None]
